FAERS Safety Report 5769250-6 (Version None)
Quarter: 2008Q2

REPORT INFORMATION
  Report Type: 
  Country: None (occurrence: None)
  Receive Date: 20080612
  Receipt Date: 20080326
  Transmission Date: 20081010
  Serious: No
  Sender: FDA-Public Use
  Company Number: US-ABBOTT-08P-163-0444141-00

PATIENT
  Sex: Female
  Weight: 41.768 kg

DRUGS (3)
  1. HUMIRA [Suspect]
     Indication: CROHN'S DISEASE
     Route: 058
     Dates: start: 20080308, end: 20080308
  2. HUMIRA [Suspect]
     Route: 058
     Dates: start: 20080322, end: 20080322
  3. HUMIRA [Suspect]
     Route: 058

REACTIONS (3)
  - ALOPECIA [None]
  - CONTUSION [None]
  - FATIGUE [None]
